FAERS Safety Report 7179057-3 (Version None)
Quarter: 2010Q4

REPORT INFORMATION
  Report Type: 
  Country: None (occurrence: None)
  Receive Date: 20101221
  Receipt Date: 20101221
  Transmission Date: 20110411
  Serious: Yes (Hospitalization)
  Sender: FDA-Public Use
  Company Number: PHHO2009GB03852

PATIENT
  Sex: Male

DRUGS (7)
  1. ACLASTA/ZOLEDRONATE T29581+A+ [Suspect]
     Indication: OSTEOPOROSIS
     Dosage: 5 MG
     Route: 042
     Dates: start: 20080818
  2. CALCIUM [Concomitant]
     Indication: OSTEOPOROSIS
  3. VITAMIN D [Concomitant]
     Indication: OSTEOPOROSIS
  4. NITROGLYCERIN [Concomitant]
     Indication: ANGINA PECTORIS
     Dosage: PRN
     Route: 060
     Dates: start: 19920101
  5. SINGULAIR [Concomitant]
     Indication: ASTHMA
     Dosage: QD, PRN
  6. GAVISCON [Concomitant]
     Indication: GASTROOESOPHAGEAL REFLUX DISEASE
     Dosage: PRN
     Route: 048
     Dates: start: 20000101
  7. OMEPRAZOLE [Concomitant]
     Indication: HIATUS HERNIA
     Dosage: PRN
     Route: 048
     Dates: start: 20000101

REACTIONS (8)
  - ATELECTASIS [None]
  - CHEST DISCOMFORT [None]
  - CHEST PAIN [None]
  - CHRONIC OBSTRUCTIVE PULMONARY DISEASE [None]
  - DYSPNOEA [None]
  - PNEUMONIA [None]
  - RESPIRATORY FAILURE [None]
  - UPPER RESPIRATORY TRACT INFECTION [None]
